FAERS Safety Report 10737567 (Version 1)
Quarter: 2015Q1

REPORT INFORMATION
  Report Type: Spontaneous
  Country: US (occurrence: US)
  Receive Date: 20150126
  Receipt Date: 20150126
  Transmission Date: 20150721
  Serious: Yes (Other)
  Sender: FDA-Public Use
  Company Number: US-BAYER-2015-006655

PATIENT
  Age: 86 Year
  Sex: Female
  Weight: 84 kg

DRUGS (2)
  1. NEO-SYNEPHRINE [Suspect]
     Active Substance: PHENYLEPHRINE HYDROCHLORIDE
     Indication: NASAL CONGESTION
     Dosage: 1 DOSE, QID
     Route: 045
  2. NITRO [Concomitant]
     Active Substance: NITROGLYCERIN

REACTIONS (2)
  - Incorrect drug administration duration [None]
  - Cardiac failure [Recovered/Resolved]

NARRATIVE: CASE EVENT DATE: 201408
